FAERS Safety Report 5208313-0 (Version None)
Quarter: 2007Q1

REPORT INFORMATION
  Report Type: 
  Country: None (occurrence: None)
  Receive Date: 20070115
  Receipt Date: 20070105
  Transmission Date: 20070707
  Serious: Yes (Death, Other)
  Sender: FDA-Public Use
  Company Number: US-PURDUE-USA_2006_0025849

PATIENT
  Age: 5 Year
  Sex: Female

DRUGS (3)
  1. OXYCONTIN [Suspect]
     Indication: DRUG USE FOR UNKNOWN INDICATION
     Dosage: UNK, UNK
  2. CODEINE SUL TAB [Suspect]
     Indication: DRUG USE FOR UNKNOWN INDICATION
     Dosage: UNK, UNK
  3. TYLENOL W/ CODEINE [Suspect]
     Indication: DRUG USE FOR UNKNOWN INDICATION
     Dosage: UNK, UNK

REACTIONS (8)
  - BRAIN DEATH [None]
  - CEREBRAL PALSY [None]
  - CEREBRAL VENTRICLE DILATATION [None]
  - GRUNTING [None]
  - MYDRIASIS [None]
  - PNEUMONIA ASPIRATION [None]
  - PUPIL FIXED [None]
  - UNRESPONSIVE TO STIMULI [None]
